FAERS Safety Report 10081117 (Version 1)
Quarter: 2014Q2

REPORT INFORMATION
  Report Type: Spontaneous
  Country: US (occurrence: None)
  Receive Date: 20140414
  Receipt Date: 20140414
  Transmission Date: 20141212
  Serious: Yes (Death)
  Sender: FDA-Public Use
  Company Number: UTC-046869

PATIENT
  Age: 43 Year
  Sex: Male

DRUGS (10)
  1. REMODULIN [Suspect]
     Indication: PULMONARY ARTERIAL HYPERTENSION
     Dosage: (0.076 UG/KG, IN 1 IN 1 MIN),
     Route: 058
     Dates: start: 20110111
  2. ADCIRCA (TADALAFIL) [Concomitant]
  3. SINGULAIR (MONTELUKAST) 10MG [Concomitant]
  4. PAROXETINE (PAROXETINE) [Concomitant]
  5. FOLIC ACID (FOLIC ACID) [Concomitant]
  6. BENADRYL (DIPHENHYDRAMINE HYDROCHLORIDE) [Concomitant]
  7. AMLODIPINE (AMLODIPINE) [Concomitant]
  8. CARVEDILOL (CARVEDILOL) [Concomitant]
  9. DIOVAN (VALSARTAN) [Concomitant]
  10. TYLENOL (PARACETAMOL) [Concomitant]

REACTIONS (1)
  - Death [None]
